FAERS Safety Report 10654812 (Version 1)
Quarter: 2014Q4

REPORT INFORMATION
  Report Type: Spontaneous
  Country: US (occurrence: None)
  Receive Date: 20141215
  Receipt Date: 20141215
  Transmission Date: 20150529
  Serious: No
  Sender: FDA-Public Use
  Company Number: None

PATIENT
  Sex: Female

DRUGS (1)
  1. DEPAKOTE [Suspect]
     Active Substance: DIVALPROEX SODIUM
     Indication: AFFECTIVE DISORDER

REACTIONS (3)
  - Product substitution issue [None]
  - Unevaluable event [None]
  - Abdominal discomfort [None]

NARRATIVE: CASE EVENT DATE: 20130501
